FAERS Safety Report 6185669-6 (Version None)
Quarter: 2009Q2

REPORT INFORMATION
  Report Type: 
  Country: None (occurrence: None)
  Receive Date: 20090511
  Receipt Date: 20090504
  Transmission Date: 20091009
  Serious: Yes (Death, Other)
  Sender: FDA-Public Use
  Company Number: PHHO2007BE15965

PATIENT
  Sex: Female

DRUGS (11)
  1. ZOLEDRONIC ACID [Suspect]
     Indication: BREAST CANCER
     Dosage: 4 MG, EVERY 3-4 WKS
     Route: 042
     Dates: start: 20030731, end: 20070326
  2. XELODA [Concomitant]
  3. TAXOTERE [Concomitant]
  4. ZOLADEX [Concomitant]
     Dosage: UNK
     Dates: start: 20030701
  5. TAMOXIFEN CITRATE [Concomitant]
     Dosage: UNK
     Dates: start: 20030701
  6. FEMARA [Concomitant]
     Dosage: UNK
     Dates: start: 20031201
  7. AROMASIN [Concomitant]
     Dosage: UNK
     Dates: start: 20040501
  8. CYCLOPHOSPHAMIDE [Concomitant]
     Dosage: UNK
     Dates: start: 20050201
  9. ADRIAMYCIN + 5-FU [Suspect]
     Dosage: UNK
     Dates: start: 20050201
  10. NAVELBINE [Concomitant]
  11. CORTICOSTEROIDS [Concomitant]

REACTIONS (10)
  - BONE DISORDER [None]
  - BONE LESION [None]
  - IMPAIRED HEALING [None]
  - MALIGNANT NEOPLASM PROGRESSION [None]
  - OSTEITIS DEFORMANS [None]
  - OSTEOMYELITIS [None]
  - OSTEONECROSIS [None]
  - PAIN IN JAW [None]
  - SECRETION DISCHARGE [None]
  - TOOTH EXTRACTION [None]
